FAERS Safety Report 5580466-4 (Version None)
Quarter: 2007Q4

REPORT INFORMATION
  Report Type: 
  Country: None (occurrence: None)
  Receive Date: 20071226
  Receipt Date: 20071207
  Transmission Date: 20080405
  Serious: Yes (Other)
  Sender: FDA-Public Use
  Company Number: AEUSA200700283

PATIENT

DRUGS (3)
  1. IMMUNE GLOBULIN INTRAVENOUS (HUMAN) [Suspect]
     Indication: PYODERMA GANGRENOSUM
     Dosage: 2 GM/KG;QM;IV
     Route: 042
  2. PREDNISONE TAB [Concomitant]
  3. IMMUNOSUPPRESSIVE AGENTS [Concomitant]

REACTIONS (1)
  - MENINGITIS ASEPTIC [None]
